FAERS Safety Report 16349559 (Version 3)
Quarter: 2019Q3

REPORT INFORMATION
  Report Type: Spontaneous
  Country: US (occurrence: US)
  Receive Date: 20190523
  Receipt Date: 20190830
  Transmission Date: 20191004
  Serious: Yes (Hospitalization, Other)
  Sender: FDA-Public Use
  Company Number: US-PFIZER INC-2019214616

PATIENT
  Age: 79 Year
  Sex: Male
  Weight: 103.42 kg

DRUGS (2)
  1. TIKOSYN [Suspect]
     Active Substance: DOFETILIDE
     Indication: ATRIAL FIBRILLATION
     Dosage: 0.25 MG, 2X/DAY (1 CAPSULE TWICE DAILY)
     Route: 048
     Dates: start: 200301
  2. TIKOSYN [Suspect]
     Active Substance: DOFETILIDE
     Dosage: 500 MG, UNK
     Dates: start: 20190506

REACTIONS (6)
  - Device malfunction [Not Recovered/Not Resolved]
  - Joint swelling [Unknown]
  - Gait disturbance [Unknown]
  - Swelling [Not Recovered/Not Resolved]
  - Fluid retention [Not Recovered/Not Resolved]
  - Peripheral swelling [Unknown]
